FAERS Safety Report 18785909 (Version 1)
Quarter: 2021Q1

REPORT INFORMATION
  Report Type: Spontaneous
  Country: US (occurrence: US)
  Receive Date: 20210125
  Receipt Date: 20210125
  Transmission Date: 20210419
  Serious: Yes (Hospitalization)
  Sender: FDA-Public Use
  Company Number: US-ROCHE-2601019

PATIENT
  Age: 46 Year
  Sex: Female
  Weight: 79.45 kg

DRUGS (5)
  1. RITUXAN [Suspect]
     Active Substance: RITUXIMAB
     Route: 042
  2. SULFAMETHOXAZOLE/TRIMETHOPRIM [Suspect]
     Active Substance: SULFAMETHOXAZOLE\TRIMETHOPRIM
     Indication: PRODUCT USE IN UNAPPROVED INDICATION
     Dosage: ONGOING NO
     Route: 065
  3. CLARITIN [Concomitant]
     Active Substance: LORATADINE
  4. RITUXAN [Suspect]
     Active Substance: RITUXIMAB
     Indication: SJOGREN^S SYNDROME
     Dosage: HAD 2 INFUSIONS, AT 2 WEEKS APART EVERY 6 MONTHS ;ONGOING: NO
     Route: 042
  5. PLAQUENIL [Suspect]
     Active Substance: HYDROXYCHLOROQUINE SULFATE
     Indication: SJOGREN^S SYNDROME
     Dosage: YES
     Route: 065

REACTIONS (10)
  - Kidney infection [Recovered/Resolved]
  - Off label use [Unknown]
  - Blood urine present [Recovered/Resolved]
  - Diarrhoea [Recovered/Resolved]
  - Vomiting [Recovered/Resolved]
  - Gastric disorder [Unknown]
  - Vaginal infection [Recovered/Resolved]
  - Dental cleaning [Unknown]
  - Malaise [Unknown]
  - Intentional product use issue [Unknown]

NARRATIVE: CASE EVENT DATE: 201912
